FAERS Safety Report 4723724-5 (Version None)
Quarter: 2005Q3

REPORT INFORMATION
  Report Type: 
  Country: None (occurrence: None)
  Receive Date: 20050720
  Receipt Date: 20050720
  Transmission Date: 20060218
  Serious: Yes (Hospitalization)
  Sender: FDA-Public Use
  Company Number: None

PATIENT
  Age: 53 Year
  Sex: Male
  Weight: 84.8226 kg

DRUGS (2)
  1. GABAPENTIN [Suspect]
     Indication: MOOD ALTERED
     Dates: start: 20050418, end: 20050423
  2. GABAPENTIN [Suspect]
     Indication: PAIN
     Dates: start: 20050418, end: 20050423

REACTIONS (2)
  - CONFUSIONAL STATE [None]
  - LETHARGY [None]
